FAERS Safety Report 5391270-4 (Version None)
Quarter: 2007Q3

REPORT INFORMATION
  Report Type: 
  Country: None (occurrence: None)
  Receive Date: 20070717
  Receipt Date: 20070702
  Transmission Date: 20080115
  Serious: Yes (Death)
  Sender: FDA-Public Use
  Company Number: 015992

PATIENT

DRUGS (1)
  1. EXTENDED PHENYTOIN SODIUM [Suspect]
     Indication: DRUG EXPOSURE DURING PREGNANCY
     Dosage: TRANSPLACENTAL
     Route: 064

REACTIONS (5)
  - CHORIOAMNIONITIS [None]
  - DRUG EXPOSURE DURING PREGNANCY [None]
  - SEPSIS [None]
  - STILLBIRTH [None]
  - TOXIC EPIDERMAL NECROLYSIS [None]
